FAERS Safety Report 5798270-0 (Version None)
Quarter: 2008Q3

REPORT INFORMATION
  Report Type: 
  Country: None (occurrence: None)
  Receive Date: 20080702
  Receipt Date: 20080624
  Transmission Date: 20090109
  Serious: Yes (Other)
  Sender: FDA-Public Use
  Company Number: DE-JNJFOC-20080502865

PATIENT
  Sex: Male
  Weight: 80 kg

DRUGS (1)
  1. ITRACOL [Suspect]
     Indication: ONYCHOMYCOSIS
     Route: 048

REACTIONS (1)
  - TYPE 1 DIABETES MELLITUS [None]
